FAERS Safety Report 21126474 (Version 1)
Quarter: 2022Q3

REPORT INFORMATION
  Report Type: Spontaneous
  Country: CO (occurrence: CO)
  Receive Date: 20220725
  Receipt Date: 20220725
  Transmission Date: 20221026
  Serious: Yes (Hospitalization, Other)
  Sender: FDA-Public Use
  Company Number: CO-BAYER-2022A103834

PATIENT
  Age: 59 Year
  Sex: Female

DRUGS (1)
  1. ULTRAVIST [Suspect]
     Active Substance: IOPROMIDE
     Indication: Computerised tomogram
     Dosage: UNK UNK, ONCE
     Dates: start: 20220701, end: 20220701

REACTIONS (12)
  - Anaphylactic reaction [None]
  - Distributive shock [None]
  - Pruritus [None]
  - Rash maculo-papular [None]
  - Dyspnoea [None]
  - Discomfort [None]
  - Respiratory distress [None]
  - Oxygen saturation decreased [None]
  - Cyanosis [None]
  - Capillary disorder [None]
  - Dyspnoea [None]
  - Chills [None]

NARRATIVE: CASE EVENT DATE: 20220701
